FAERS Safety Report 5357964-1 (Version None)
Quarter: 2007Q2

REPORT INFORMATION
  Report Type: 
  Country: None (occurrence: None)
  Receive Date: 20070612
  Receipt Date: 20070605
  Transmission Date: 20071010
  Serious: Yes (Death)
  Sender: FDA-Public Use
  Company Number: 163-21880-07050971

PATIENT
  Age: 81 Year
  Sex: Male

DRUGS (1)
  1. REVLIMID [Suspect]
     Indication: MYELODYSPLASTIC SYNDROME
     Dosage: DAILY X21 DAYS, OFF 7 DAY, ORAL
     Route: 048
     Dates: start: 20070504, end: 20070517

REACTIONS (1)
  - CARDIAC FAILURE [None]
